FAERS Safety Report 14989141 (Version 1)
Quarter: 2018Q2

REPORT INFORMATION
  Report Type: Spontaneous
  Country: IR (occurrence: IR)
  Receive Date: 20180608
  Receipt Date: 20180608
  Transmission Date: 20180711
  Serious: Yes (Hospitalization, Other)
  Sender: FDA-Public Use
  Company Number: IR-MYLANLABS-2018M1038345

PATIENT
  Age: 60 Year
  Sex: Female

DRUGS (4)
  1. METHOTREXATE. [Suspect]
     Active Substance: METHOTREXATE
     Indication: DERMATOMYOSITIS
     Dosage: FOR LAST 10 YEARS
     Route: 065
  2. GLIBENCLAMIDE [Concomitant]
     Active Substance: GLYBURIDE
     Indication: DIABETES MELLITUS
     Route: 065
  3. METFORMIN [Concomitant]
     Active Substance: METFORMIN HYDROCHLORIDE
     Indication: DIABETES MELLITUS
     Route: 065
  4. PREDNISOLONE. [Suspect]
     Active Substance: PREDNISOLONE
     Indication: DERMATOMYOSITIS
     Dosage: FOR LAST 10 YEARS
     Route: 065

REACTIONS (8)
  - Tachycardia [Unknown]
  - Hyponatraemia [Unknown]
  - Dehydration [Unknown]
  - Hypotension [Unknown]
  - Strongyloidiasis [Recovered/Resolved]
  - Loss of consciousness [Recovered/Resolved]
  - Shock [Unknown]
  - Hyperglycaemia [Recovered/Resolved]
